FAERS Safety Report 18454778 (Version 1)
Quarter: 2020Q4

REPORT INFORMATION
  Report Type: Spontaneous
  Country: US (occurrence: US)
  Receive Date: 20201102
  Receipt Date: 20201102
  Transmission Date: 20210114
  Serious: Yes (Hospitalization)
  Sender: FDA-Public Use
  Company Number: US-AMNEAL PHARMACEUTICALS-2020-AMRX-03406

PATIENT
  Age: 23 Year
  Sex: Female

DRUGS (2)
  1. METOPROLOL. [Suspect]
     Active Substance: METOPROLOL
     Indication: PRODUCT USED FOR UNKNOWN INDICATION
     Dosage: 60 TABLETS
     Route: 065
  2. AMLODIPINE BESYLATE. [Suspect]
     Active Substance: AMLODIPINE BESYLATE
     Indication: PRODUCT USED FOR UNKNOWN INDICATION
     Dosage: 60 TABLETS
     Route: 065

REACTIONS (7)
  - Respiratory failure [Recovered/Resolved]
  - Toxicity to various agents [Recovered/Resolved]
  - Cardiogenic shock [Recovered/Resolved]
  - Lactic acidosis [Recovered/Resolved]
  - Sinus bradycardia [Recovered/Resolved]
  - Overdose [Recovered/Resolved]
  - Multiple organ dysfunction syndrome [Recovered/Resolved]
